FAERS Safety Report 4454783-5 (Version None)
Quarter: 2004Q3

REPORT INFORMATION
  Report Type: 
  Country: None (occurrence: None)
  Receive Date: 20040915
  Receipt Date: 20040830
  Transmission Date: 20050211
  Serious: Yes (Hospitalization)
  Sender: FDA-Public Use
  Company Number: WAES 0310USA02536

PATIENT
  Age: 83 Year
  Sex: Female

DRUGS (10)
  1. PEPCID RPD [Suspect]
     Indication: GASTRIC ULCER
     Dosage: 20 MG/DAILY
     Route: 048
     Dates: start: 20000101, end: 20030930
  2. ADALAT [Concomitant]
  3. LASIX [Concomitant]
  4. MUCOSTA [Concomitant]
  5. MG OXIDE [Concomitant]
  6. PANSOPRIN [Concomitant]
  7. SLOW-K [Concomitant]
  8. SOLANAX [Concomitant]
  9. TAKEPRON [Concomitant]
  10. DISOPYRAMIDE [Concomitant]

REACTIONS (2)
  - CARDIAC FAILURE CONGESTIVE [None]
  - RHABDOMYOLYSIS [None]
